FAERS Safety Report 13260375 (Version 1)
Quarter: 2017Q1

REPORT INFORMATION
  Report Type: Spontaneous
  Country: US (occurrence: US)
  Receive Date: 20170222
  Receipt Date: 20170222
  Transmission Date: 20170428
  Serious: Yes (Hospitalization)
  Sender: FDA-Public Use
  Company Number: None

PATIENT
  Age: 56 Year
  Sex: Female
  Weight: 127.01 kg

DRUGS (15)
  1. VITAMIN C [Concomitant]
     Active Substance: ASCORBIC ACID
  2. VITAMIN D [Concomitant]
     Active Substance: CHOLECALCIFEROL
  3. CEPHALEXIN. [Suspect]
     Active Substance: CEPHALEXIN
  4. AMOXICILLIN. [Suspect]
     Active Substance: AMOXICILLIN
     Indication: TOOTH INFECTION
     Dosage: ?          QUANTITY:IT,?I P;?
     Route: 048
     Dates: start: 20161227, end: 20161231
  5. BETAMETHASONE. [Concomitant]
     Active Substance: BETAMETHASONE
  6. KELP (IODINE) [Concomitant]
  7. AMOXICILLIN. [Suspect]
     Active Substance: AMOXICILLIN
     Indication: OSTEOMYELITIS
     Dosage: ?          QUANTITY:IT,?I P;?
     Route: 048
     Dates: start: 20161227, end: 20161231
  8. FISH OIL [Concomitant]
     Active Substance: FISH OIL
  9. MULTIVITAMIN [Concomitant]
     Active Substance: VITAMINS
  10. ESTRADIOL. [Concomitant]
     Active Substance: ESTRADIOL
  11. TURMERIC [Concomitant]
     Active Substance: TURMERIC
  12. AMOXICILLIN. [Suspect]
     Active Substance: AMOXICILLIN
     Indication: GINGIVITIS
     Dosage: ?          QUANTITY:IT,?I P;?
     Route: 048
     Dates: start: 20161227, end: 20161231
  13. CLOZARIL [Concomitant]
     Active Substance: CLOZAPINE
  14. VALERATE [Concomitant]
  15. ASPIRIN. [Concomitant]
     Active Substance: ASPIRIN

REACTIONS (2)
  - Therapy non-responder [None]
  - Drug hypersensitivity [None]

NARRATIVE: CASE EVENT DATE: 20161228
